FAERS Safety Report 14677188 (Version 1)
Quarter: 2018Q1

REPORT INFORMATION
  Report Type: Spontaneous
  Country: US (occurrence: US)
  Receive Date: 20180323
  Receipt Date: 20180323
  Transmission Date: 20180509
  Serious: Yes (Disabling)
  Sender: FDA-Public Use
  Company Number: None

PATIENT
  Age: 66 Year
  Sex: Male
  Weight: 112.5 kg

DRUGS (14)
  1. ZOLPIDEM [Concomitant]
     Active Substance: ZOLPIDEM\ZOLPIDEM TARTRATE
  2. MULTI VITAMIN [Concomitant]
     Active Substance: VITAMINS
  3. SIMVASTATIN. [Concomitant]
     Active Substance: SIMVASTATIN
  4. VELAFAXINE HCL ER 75MG ZYDUS [Concomitant]
     Active Substance: VENLAFAXINE HYDROCHLORIDE
  5. FENOFIBRATE. [Concomitant]
     Active Substance: FENOFIBRATE
  6. ASPIRIN. [Concomitant]
     Active Substance: ASPIRIN
  7. LEVOTHYROXINE. [Concomitant]
     Active Substance: LEVOTHYROXINE
  8. METFORMIN [Concomitant]
     Active Substance: METFORMIN HYDROCHLORIDE
  9. AMLODIPINE [Concomitant]
     Active Substance: AMLODIPINE BESYLATE
  10. LOSARTIN [Concomitant]
     Active Substance: LOSARTAN
  11. MELOXICAM. [Concomitant]
     Active Substance: MELOXICAM
  12. METOPROL SUCCINATE [Concomitant]
     Active Substance: METOPROLOL SUCCINATE
  13. GLIPIZIDE ER [Suspect]
     Active Substance: GLIPIZIDE
     Indication: DIABETES MELLITUS
     Dosage: ?          QUANTITY:90 CAPSULE(S);?
     Route: 048
  14. ALLOPURINOL. [Concomitant]
     Active Substance: ALLOPURINOL

REACTIONS (16)
  - Insomnia [None]
  - Impaired driving ability [None]
  - Muscle tightness [None]
  - Mobility decreased [None]
  - Back pain [None]
  - Pain [None]
  - Dysarthria [None]
  - Depression [None]
  - Somnolence [None]
  - Stupor [None]
  - Dysphonia [None]
  - Lethargy [None]
  - Oropharyngeal pain [None]
  - Arthralgia [None]
  - Pulmonary congestion [None]
  - Musculoskeletal pain [None]

NARRATIVE: CASE EVENT DATE: 20180309
